FAERS Safety Report 13582223 (Version 2)
Quarter: 2017Q2

REPORT INFORMATION
  Report Type: Spontaneous
  Country: CA (occurrence: CA)
  Receive Date: 20170525
  Receipt Date: 20170530
  Transmission Date: 20170830
  Serious: Yes (Death, Life-Threatening, Hospitalization, Other)
  Sender: FDA-Public Use
  Company Number: CA-JNJFOC-20170516384

PATIENT
  Age: 28 Month
  Sex: Male

DRUGS (2)
  1. TYLENOL [Suspect]
     Active Substance: ACETAMINOPHEN
     Indication: RESPIRATORY SYMPTOM
     Dosage: STARTED ON DAY 1 7 OF THE MONTH (DAY 1).
     Route: 065
  2. SALICYLIC ACID PREPARATIONS [Suspect]
     Active Substance: SALICYLIC ACID
     Indication: RESPIRATORY SYMPTOM
     Dosage: STARTED ON DAY 18 OF THE MONTH (DAY 2).
     Route: 065

REACTIONS (2)
  - Toxicity to various agents [Fatal]
  - Acute hepatic failure [Fatal]
